FAERS Safety Report 7957993-5 (Version None)
Quarter: 2011Q4

REPORT INFORMATION
  Report Type: 
  Country: None (occurrence: None)
  Receive Date: 20111205
  Receipt Date: 20111020
  Transmission Date: 20120403
  Serious: No
  Sender: FDA-Public Use
  Company Number: US-BAYER-2011-103069

PATIENT

DRUGS (4)
  1. IBUPROFEN (ADVIL) [Concomitant]
  2. ASPIRIN [Concomitant]
  3. EXCEDRIN (MIGRAINE) [Concomitant]
  4. ALEVE (CAPLET) [Suspect]
     Indication: HEADACHE

REACTIONS (3)
  - NAUSEA [None]
  - VISUAL IMPAIRMENT [None]
  - HEADACHE [None]
